FAERS Safety Report 6235672-2 (Version None)
Quarter: 2009Q2

REPORT INFORMATION
  Report Type: 
  Country: None (occurrence: None)
  Receive Date: 20090616
  Receipt Date: 20090608
  Transmission Date: 20091009
  Serious: Yes (Hospitalization)
  Sender: FDA-Public Use
  Company Number: SPV1-2009-01192

PATIENT
  Age: 15 Year
  Sex: Male
  Weight: 49.4 kg

DRUGS (13)
  1. CARBATROL [Suspect]
     Indication: CONVULSION
     Dosage: 100 MG; THREE 100-MG CAPSULES TWICE DAILY
     Dates: start: 20070101, end: 20070101
  2. CARBATROL [Suspect]
     Indication: CONVULSION
     Dosage: 100 MG; THREE 100-MG CAPSULES TWICE DAILY
     Dates: start: 20070101
  3. ALBUTEROL /00139501/ (SALBUTAMOL) [Concomitant]
  4. IPRATROPIUM (IPARTROPIUM) [Concomitant]
  5. PULMOZYME [Concomitant]
  6. ADEK (COLECALCIFEROL, MENADIOL, RETINOL PALMITATE, TOCOPHERYL ACETATE) [Concomitant]
  7. ALTPRACE [Concomitant]
  8. VIOKASE /00014701/ (PANCREATIN) [Concomitant]
  9. RANITIDINE [Concomitant]
  10. SINGULAIR /01362601/ (MONTELUKAST) [Concomitant]
  11. FERROUS SULFATE TAB [Concomitant]
  12. ACTIGALL [Concomitant]
  13. KETOCONAZOLE [Concomitant]

REACTIONS (12)
  - COCCIDIOIDOMYCOSIS [None]
  - COGNITIVE DISORDER [None]
  - CONVULSION [None]
  - DRUG EFFECT INCREASED [None]
  - DYSARTHRIA [None]
  - EYES SUNKEN [None]
  - HEADACHE [None]
  - INTESTINAL OBSTRUCTION [None]
  - MENTAL IMPAIRMENT [None]
  - MIOSIS [None]
  - MYDRIASIS [None]
  - PALLOR [None]
